FAERS Safety Report 22096904 (Version 2)
Quarter: 2023Q1

REPORT INFORMATION
  Report Type: Spontaneous
  Country: CA (occurrence: CA)
  Receive Date: 20230315
  Receipt Date: 20230315
  Transmission Date: 20230417
  Serious: Yes (Hospitalization, Other)
  Sender: FDA-Public Use
  Company Number: CA-PIRAMAL CRITICAL CARE LIMITED-2023-PEL-000137

PATIENT

DRUGS (1)
  1. SEVOFLURANE [Suspect]
     Active Substance: SEVOFLURANE
     Indication: Open reduction of fracture
     Dosage: UNK

REACTIONS (2)
  - Hyperthermia malignant [Unknown]
  - Endotracheal intubation [Unknown]
